FAERS Safety Report 20709984 (Version 4)
Quarter: 2022Q2

REPORT INFORMATION
  Report Type: Other
  Country: CA (occurrence: None)
  Receive Date: 20220414
  Receipt Date: 20220520
  Transmission Date: 20220721
  Serious: Yes (Hospitalization)
  Sender: FDA-Public Use
  Company Number: CA-ROCHE-2684589

PATIENT
  Age: 44 Year
  Sex: Male

DRUGS (8)
  1. OCREVUS [Suspect]
     Active Substance: OCRELIZUMAB
     Indication: Relapsing-remitting multiple sclerosis
     Dosage: 300 MG AT DAY 0 AND 14, THEN 600 MG EVERY 6 MONTH
     Route: 042
     Dates: start: 20190312
  2. PRAMIPEXOLE [Concomitant]
     Active Substance: PRAMIPEXOLE
  3. FENO-MICRO [Concomitant]
  4. CLONAZEPAM [Concomitant]
     Active Substance: CLONAZEPAM
  5. CHOLECALCIFEROL [Concomitant]
     Active Substance: CHOLECALCIFEROL
  6. XARELTO [Concomitant]
     Active Substance: RIVAROXABAN
  7. ARIPIPRAZOLE [Concomitant]
     Active Substance: ARIPIPRAZOLE
  8. MELATONIN [Concomitant]
     Active Substance: MELATONIN

REACTIONS (6)
  - Urinary tract infection [Recovered/Resolved]
  - COVID-19 [Recovered/Resolved]
  - Thinking abnormal [Not Recovered/Not Resolved]
  - Asthenia [Not Recovered/Not Resolved]
  - Fatigue [Not Recovered/Not Resolved]
  - Bladder disorder [Not Recovered/Not Resolved]

NARRATIVE: CASE EVENT DATE: 20220316
